FAERS Safety Report 9644172 (Version 3)
Quarter: 2015Q1

REPORT INFORMATION
  Report Type: Report from Study
  Country: US (occurrence: US)
  Receive Date: 20131024
  Receipt Date: 20150316
  Transmission Date: 20150721
  Serious: Yes (Death)
  Sender: FDA-Public Use
  Company Number: US-ROCHE-1292277

PATIENT
  Sex: Female
  Weight: 76.27 kg

DRUGS (17)
  1. RITUXAN [Suspect]
     Active Substance: RITUXIMAB
     Indication: RHEUMATOID ARTHRITIS
     Dosage: ON DAY 1 AND DAY 15
     Route: 042
  2. NORVASC [Concomitant]
     Active Substance: AMLODIPINE BESYLATE
     Dosage: 5MG, 1 TAB DAILY
     Route: 065
     Dates: start: 20120517
  3. PREDNISONE. [Concomitant]
     Active Substance: PREDNISONE
     Dosage: 10MG, 1-4 TABS DAILY
     Route: 065
     Dates: start: 20130516
  4. LEVOTHYROXINE SODIUM. [Concomitant]
     Active Substance: LEVOTHYROXINE SODIUM
     Route: 065
     Dates: start: 20130717
  5. METOPROLOL TARTRATE. [Concomitant]
     Active Substance: METOPROLOL TARTRATE
     Dosage: 50MG, 1 TAB DAILY
     Route: 065
     Dates: start: 20120517
  6. KLOR-CON [Concomitant]
     Active Substance: POTASSIUM CHLORIDE
     Dosage: 10MEQ, 1 TAB DAILY
     Route: 065
     Dates: start: 20130717
  7. LISINOPRIL. [Concomitant]
     Active Substance: LISINOPRIL
     Dosage: 10 MG DAILY
     Route: 065
     Dates: start: 20110810
  8. FISH OIL [Concomitant]
     Active Substance: FISH OIL
     Dosage: 2000MG DAILY
     Route: 065
     Dates: start: 20120716
  9. OMEPRAZOLE. [Concomitant]
     Active Substance: OMEPRAZOLE
     Dosage: 1 TABLET TWICE DAILY
     Route: 065
     Dates: start: 20130717
  10. COUMADIN [Concomitant]
     Active Substance: WARFARIN SODIUM
     Dosage: 2MG DAILY
     Route: 065
     Dates: start: 20130717
  11. VITAMIN C [Concomitant]
     Active Substance: ASCORBIC ACID
     Dosage: 500MG DAILY
     Route: 065
     Dates: start: 20120103
  12. PREDNISONE. [Concomitant]
     Active Substance: PREDNISONE
     Dosage: 2.5MG, 1-3 TABLETS DAILY
     Route: 065
     Dates: start: 20130717
  13. PERCOCET [Concomitant]
     Active Substance: ACETAMINOPHEN\OXYCODONE HYDROCHLORIDE
     Dosage: 1 CAPSULE EVERY 6 HRS
     Route: 065
     Dates: start: 20130717
  14. LASIX [Concomitant]
     Active Substance: FUROSEMIDE
     Dosage: 20MG, 1 TAB DAILY
     Route: 065
     Dates: start: 20130717
  15. NEURONTIN [Concomitant]
     Active Substance: GABAPENTIN
     Dosage: 1 CAPSULE 3 TIMES DAILY
     Route: 065
     Dates: start: 20130717
  16. ALBUTEROL. [Concomitant]
     Active Substance: ALBUTEROL
     Dosage: 90MCGM, 2PUFFS EVERY 4 HRS
     Route: 065
     Dates: start: 20130717
  17. CRANBERRY. [Concomitant]
     Active Substance: CRANBERRY
     Dosage: 3 TABS DAILY
     Route: 065
     Dates: start: 20120517

REACTIONS (1)
  - Diabetes mellitus [Fatal]
